FAERS Safety Report 14958344 (Version 1)
Quarter: 2018Q2

REPORT INFORMATION
  Report Type: Spontaneous
  Country: US (occurrence: US)
  Receive Date: 20180531
  Receipt Date: 20180531
  Transmission Date: 20180711
  Serious: Yes (Hospitalization)
  Sender: FDA-Public Use
  Company Number: US-MYLANLABS-2018M1035922

PATIENT
  Age: 61 Year
  Sex: Female

DRUGS (2)
  1. MORPHINE [Suspect]
     Active Substance: MORPHINE
     Indication: PRODUCT USED FOR UNKNOWN INDICATION
     Dosage: A LIKELY DOSE OF 100MG ADMINISTERED BY THE SURGEON INSTEAD OF THE INTENDED 10MG DOSE BECAUSE OF A...
     Route: 050
  2. FENTANYL. [Concomitant]
     Active Substance: FENTANYL
     Indication: INDUCTION OF ANAESTHESIA
     Dosage: 50 ?G, GENERAL ANAESTHESIA WAS INDUCED USING FENTANYL AND WAS ADMINISTERED AGAIN DURING INCISION
     Route: 065

REACTIONS (4)
  - Drug dispensing error [Recovered/Resolved]
  - Drug administration error [Recovered/Resolved]
  - Unresponsive to stimuli [Recovered/Resolved]
  - Accidental overdose [Recovered/Resolved]
